FAERS Safety Report 15924171 (Version 1)
Quarter: 2019Q1

REPORT INFORMATION
  Report Type: Spontaneous
  Country: US (occurrence: US)
  Receive Date: 20190206
  Receipt Date: 20190206
  Transmission Date: 20190417
  Serious: No
  Sender: FDA-Public Use
  Company Number: None

PATIENT
  Age: 8 Year
  Sex: Male
  Weight: 23.1 kg

DRUGS (1)
  1. POLYETHYLENE GLYCOL 3350 POWDER [Suspect]
     Active Substance: POLYETHYLENE GLYCOL 3350
     Indication: NEUROGENIC BOWEL
     Dosage: ?          OTHER ROUTE:GASTROSTOMY TUBE?
     Dates: start: 20130211, end: 20190130

REACTIONS (2)
  - Drug ineffective [None]
  - Constipation [None]

NARRATIVE: CASE EVENT DATE: 20190201
